FAERS Safety Report 5776462-4 (Version None)
Quarter: 2008Q2

REPORT INFORMATION
  Report Type: 
  Country: None (occurrence: None)
  Receive Date: 20080617
  Receipt Date: 20080617
  Transmission Date: 20081010
  Serious: Yes (Other)
  Sender: FDA-Public Use
  Company Number: None

PATIENT
  Age: 55 Year
  Sex: Female
  Weight: 64.8644 kg

DRUGS (2)
  1. ACYCLOVIR [Suspect]
     Indication: ERYTHEMA MULTIFORME
     Dosage: 1 BID PO
     Route: 048
     Dates: start: 20080330, end: 20080509
  2. AMLODIPINE [Concomitant]

REACTIONS (2)
  - DRUG EFFECT DECREASED [None]
  - PHARMACEUTICAL PRODUCT COMPLAINT [None]
